FAERS Safety Report 7660438-6 (Version None)
Quarter: 2011Q3

REPORT INFORMATION
  Report Type: 
  Country: None (occurrence: None)
  Receive Date: 20110805
  Receipt Date: 20110727
  Transmission Date: 20111222
  Serious: Yes (Hospitalization)
  Sender: FDA-Public Use
  Company Number: DE-ABBOTT-11P-062-0729827-01

PATIENT
  Age: 29 Year
  Sex: Female

DRUGS (2)
  1. LEUPROLIDE ACETATE [Suspect]
     Indication: OVARIAN DISORDER
  2. LEUPROLIDE ACETATE [Suspect]
     Indication: PROPHYLAXIS
     Route: 058

REACTIONS (1)
  - INFECTED LYMPHOCELE [None]
